FAERS Safety Report 5237109-9 (Version None)
Quarter: 2007Q1

REPORT INFORMATION
  Report Type: 
  Country: None (occurrence: None)
  Receive Date: 20070213
  Receipt Date: 20070131
  Transmission Date: 20070707
  Serious: Yes (Other)
  Sender: FDA-Public Use
  Company Number: PHBS2007JP02102

PATIENT
  Sex: Female

DRUGS (3)
  1. EURODIN [Concomitant]
     Indication: DEPRESSION
  2. LORAZEPAM [Concomitant]
     Indication: DEPRESSION
  3. LUDIOMIL [Suspect]
     Indication: DEPRESSION
     Route: 048

REACTIONS (1)
  - THYROID DISORDER [None]
